FAERS Safety Report 9166590 (Version 2)
Quarter: 2013Q2

REPORT INFORMATION
  Report Type: Report from Study
  Country: DE (occurrence: DE)
  Receive Date: 20130315
  Receipt Date: 20130528
  Transmission Date: 20140414
  Serious: Yes (Hospitalization, Other)
  Sender: FDA-Public Use
  Company Number: DE-BAXTER-2013BAX009107

PATIENT
  Age: 50 Year
  Sex: Male
  Weight: 78 kg

DRUGS (3)
  1. ADVATE 250 I.E. [Suspect]
     Indication: FACTOR VIII DEFICIENCY
     Route: 065
     Dates: start: 20130311
  2. ADVATE 250 I.E. [Suspect]
     Indication: PROPHYLAXIS
  3. ADVATE 250 I.E. [Suspect]
     Indication: SURGERY

REACTIONS (1)
  - Colon cancer [Recovering/Resolving]
